FAERS Safety Report 6767348-7 (Version None)
Quarter: 2010Q2

REPORT INFORMATION
  Report Type: 
  Country: None (occurrence: None)
  Receive Date: 20100610
  Receipt Date: 20100602
  Transmission Date: 20101027
  Serious: Yes (Hospitalization)
  Sender: FDA-Public Use
  Company Number: 8047033

PATIENT
  Sex: Female
  Weight: 63.1 kg

DRUGS (5)
  1. CERTOLIZUMAB PEGOL [Suspect]
     Indication: CROHN'S DISEASE
     Dosage: (SUBCUTANEOUS)
     Route: 058
     Dates: start: 20080829
  2. LUNESTA [Concomitant]
  3. LEXAPRO [Concomitant]
  4. DEPO PROVERA [Concomitant]
  5. PENTASA [Concomitant]

REACTIONS (8)
  - ABDOMINAL PAIN UPPER [None]
  - CHEST PAIN [None]
  - HYDROPNEUMOTHORAX [None]
  - LOBAR PNEUMONIA [None]
  - OESOPHAGEAL PERFORATION [None]
  - OESOPHAGEAL STENOSIS [None]
  - PLEURAL EFFUSION [None]
  - PNEUMOTHORAX [None]
